FAERS Safety Report 4281028-1 (Version None)
Quarter: 2004Q1

REPORT INFORMATION
  Report Type: 
  Country: None (occurrence: None)
  Receive Date: 20040129
  Receipt Date: 20030306
  Transmission Date: 20041129
  Serious: No
  Sender: FDA-Public Use
  Company Number: US-BRISTOL-MYERS SQUIBB COMPANY-12203618

PATIENT
  Age: 59 Year
  Sex: Female

DRUGS (6)
  1. CISPLATIN [Suspect]
     Indication: TRANSITIONAL CELL CARCINOMA
     Dosage: ADMINISTERED OVER 4 HOURS
     Route: 042
     Dates: start: 20030228, end: 20030228
  2. GEMCITABINE [Concomitant]
     Indication: TRANSITIONAL CELL CARCINOMA
     Dosage: OVER 90 MINUTES
     Route: 042
     Dates: start: 20030228
  3. IFOSFAMIDE [Concomitant]
     Indication: TRANSITIONAL CELL CARCINOMA
     Dosage: OVER 30 MINUTES
     Route: 042
     Dates: start: 20030228
  4. ZOFRAN [Concomitant]
     Indication: PREMEDICATION
     Route: 042
  5. DECADRON [Concomitant]
     Indication: PREMEDICATION
     Route: 042
  6. MANNITOL [Concomitant]
     Dosage: OVER 4 HOURS
     Route: 042

REACTIONS (2)
  - BLOOD PRESSURE DECREASED [None]
  - HEART RATE DECREASED [None]
